FAERS Safety Report 21358584 (Version 1)
Quarter: 2022Q3

REPORT INFORMATION
  Report Type: Spontaneous
  Country: US (occurrence: US)
  Receive Date: 20220921
  Receipt Date: 20220921
  Transmission Date: 20221027
  Serious: No
  Sender: FDA-Public Use
  Company Number: US-009507513-2209USA006957

PATIENT
  Age: 35 Year
  Sex: Male

DRUGS (2)
  1. PRIMAXIN IV [Suspect]
     Active Substance: CILASTATIN SODIUM\IMIPENEM
     Indication: Mycobacterium abscessus infection
     Dosage: 1 GRAM, Q12H
     Route: 042
     Dates: start: 202001
  2. AMIKACIN [Concomitant]
     Active Substance: AMIKACIN
     Indication: Mycobacterium abscessus infection
     Dosage: 1500 MILLIGRAM, ON MONDAY, WEDNESDAY, AND FRIDAY (MWF)
     Route: 042
     Dates: start: 202001

REACTIONS (1)
  - Off label use [Unknown]

NARRATIVE: CASE EVENT DATE: 20200101
